FAERS Safety Report 17560604 (Version 1)
Quarter: 2020Q1

REPORT INFORMATION
  Report Type: Spontaneous
  Country: US (occurrence: US)
  Receive Date: 20200312
  Receipt Date: 20200312
  Transmission Date: 20200409
  Serious: No
  Sender: FDA-Public Use
  Company Number: None

PATIENT
  Sex: Male
  Weight: 66.2 kg

DRUGS (2)
  1. DAUNORUBICIN [Concomitant]
     Active Substance: DAUNORUBICIN
  2. CYTARABINE (63878) [Suspect]
     Active Substance: CYTARABINE

REACTIONS (1)
  - Febrile neutropenia [None]

NARRATIVE: CASE EVENT DATE: 20200211
